FAERS Safety Report 23469287 (Version 1)
Quarter: 2024Q1

REPORT INFORMATION
  Report Type: Spontaneous
  Country: US (occurrence: None)
  Receive Date: 20240201
  Receipt Date: 20240201
  Transmission Date: 20240410
  Serious: Yes (Hospitalization)
  Sender: FDA-Public Use
  Company Number: None

PATIENT
  Age: 67 Year
  Sex: Female

DRUGS (14)
  1. XOLAIR [Suspect]
     Active Substance: OMALIZUMAB
     Indication: Asthma
     Dosage: FREQUENCY : MONTHLY;?
     Route: 058
     Dates: start: 20200226
  2. ACYCLOVIR [Concomitant]
     Active Substance: ACYCLOVIR
  3. AZELASTINE SPR [Concomitant]
  4. CORE CR [Concomitant]
  5. DONNATAL [Concomitant]
  6. HYALURONIC ACID [Concomitant]
     Active Substance: HYALURONIC ACID
  7. EPIPEN 2-PK [Concomitant]
  8. LEXISCAN [Concomitant]
     Active Substance: REGADENOSON
  9. MONTELUKAST [Concomitant]
     Active Substance: MONTELUKAST SODIUM
  10. PRAVASTATIN [Concomitant]
     Active Substance: PRAVASTATIN
  11. PROAIR HFA AER [Concomitant]
  12. SAXENDA [Concomitant]
     Active Substance: LIRAGLUTIDE
  13. SPIRONOLACTONE [Concomitant]
     Active Substance: SPIRONOLACTONE
  14. TRIAMCIN ACE [Concomitant]

REACTIONS (3)
  - Drug ineffective [None]
  - Quality of life decreased [None]
  - Device lead damage [None]

NARRATIVE: CASE EVENT DATE: 20240123
